FAERS Safety Report 9862287 (Version 1)
Quarter: 2014Q1

REPORT INFORMATION
  Report Type: Spontaneous
  Country: US (occurrence: US)
  Receive Date: 20140203
  Receipt Date: 20140203
  Transmission Date: 20141002
  Serious: No
  Sender: FDA-Public Use
  Company Number: US-OPTIMER-20130379

PATIENT
  Sex: 0

DRUGS (7)
  1. DIFICID [Suspect]
     Indication: CLOSTRIDIAL INFECTION
     Dosage: 200 MG, BID
     Route: 048
     Dates: start: 20130618, end: 20130627
  2. DIFICID [Suspect]
     Dosage: 200 MG, BID
     Route: 048
     Dates: start: 20130711, end: 20130720
  3. DIFICID [Suspect]
     Dosage: 200 MG, BID
     Route: 048
     Dates: start: 20130927
  4. NOVOLIN [Concomitant]
     Indication: PRODUCT USED FOR UNKNOWN INDICATION
     Dosage: UNK
  5. XANAX [Concomitant]
     Indication: PRODUCT USED FOR UNKNOWN INDICATION
     Dosage: UNK
  6. AMBIEN [Concomitant]
     Indication: PRODUCT USED FOR UNKNOWN INDICATION
     Dosage: UNK
  7. PREDNISONE [Concomitant]
     Indication: PRODUCT USED FOR UNKNOWN INDICATION
     Dosage: UNK

REACTIONS (3)
  - Clostridium difficile infection [Not Recovered/Not Resolved]
  - Disease recurrence [Not Recovered/Not Resolved]
  - Off label use [Not Recovered/Not Resolved]
